FAERS Safety Report 6035613-7 (Version None)
Quarter: 2009Q1

REPORT INFORMATION
  Report Type: 
  Country: None (occurrence: None)
  Receive Date: 20090113
  Receipt Date: 20090105
  Transmission Date: 20090719
  Serious: Yes (Hospitalization)
  Sender: FDA-Public Use
  Company Number: PHHY2009TW00693

PATIENT
  Age: 65 Year
  Sex: Female

DRUGS (3)
  1. DIOVAN HCT [Suspect]
     Indication: HYPERTENSION
     Dosage: 80/12.5 MG
     Route: 048
     Dates: start: 20081210, end: 20081216
  2. DIOVAN [Suspect]
     Indication: HYPERTENSION
     Dosage: 160 MG DAILY
     Route: 048
     Dates: start: 20070430, end: 20081113
  3. ZANIDIP [Concomitant]
     Dosage: 10 MG

REACTIONS (3)
  - HYPONATRAEMIA [None]
  - PEPTIC ULCER [None]
  - VOMITING [None]
